FAERS Safety Report 17543012 (Version 1)
Quarter: 2020Q1

REPORT INFORMATION
  Report Type: Spontaneous
  Country: US (occurrence: US)
  Receive Date: 20200306
  Receipt Date: 20200306
  Transmission Date: 20200409
  Serious: Yes (Hospitalization)
  Sender: FDA-Public Use
  Company Number: None

PATIENT
  Sex: Female

DRUGS (9)
  1. HYDROXYCHLOR [Concomitant]
     Active Substance: HYDROXYCHLOROQUINE
  2. GABAPENTIN. [Concomitant]
     Active Substance: GABAPENTIN
  3. OXYBUTYNIN. [Concomitant]
     Active Substance: OXYBUTYNIN CHLORIDE
  4. RANITIDINE. [Concomitant]
     Active Substance: RANITIDINE
  5. DALFAMPRIDINE  10MG [Suspect]
     Active Substance: DALFAMPRIDINE
     Indication: MULTIPLE SCLEROSIS
     Route: 048
     Dates: start: 201904, end: 201907
  6. TECFIDERA [Concomitant]
     Active Substance: DIMETHYL FUMARATE
  7. FAMOTIDINE. [Concomitant]
     Active Substance: FAMOTIDINE
  8. AMPYRA [Concomitant]
     Active Substance: DALFAMPRIDINE
  9. NITROFURANTN [Concomitant]
     Active Substance: NITROFURANTOIN

REACTIONS (2)
  - Multiple sclerosis [None]
  - Fall [None]
